FAERS Safety Report 7932849-2 (Version None)
Quarter: 2011Q4

REPORT INFORMATION
  Report Type: 
  Country: None (occurrence: None)
  Receive Date: 20111122
  Receipt Date: 20111117
  Transmission Date: 20120403
  Serious: Yes (Hospitalization, Other)
  Sender: FDA-Public Use
  Company Number: JP-PFIZER INC-2011230515

PATIENT
  Age: 39 Year
  Sex: Male
  Weight: 73 kg

DRUGS (10)
  1. LOXONIN [Concomitant]
     Indication: MYALGIA
     Dosage: 60 MG, 2X/DAY
     Route: 048
     Dates: start: 20100224
  2. MUCOSTA [Concomitant]
     Indication: MYALGIA
     Dosage: 100 MG, 2X/DAY
     Route: 048
     Dates: start: 20100224
  3. LYRICA [Concomitant]
     Indication: DIABETIC NEUROPATHY
     Dosage: 150 MG, 1X/DAY
     Route: 048
     Dates: start: 20110119
  4. CADUET [Suspect]
     Indication: HYPERTENSION
     Dosage: 5 MG/10 MG, 1X/DAY
     Route: 048
     Dates: start: 20110825, end: 20110920
  5. NOVORAPID [Concomitant]
     Indication: TYPE 1 DIABETES MELLITUS
     Dosage: 24 UNITS/DAY
     Route: 058
     Dates: start: 20091228
  6. RABEPRAZOLE SODIUM [Concomitant]
     Indication: GASTRITIS
     Dosage: 10 MG, 1X/DAY
     Route: 048
     Dates: start: 20100303
  7. ADOFEED [Concomitant]
     Indication: MYALGIA
     Dosage: 1 DF, AS NEEDED
     Route: 062
     Dates: start: 20100203
  8. CADUET [Suspect]
     Indication: HYPERLIPIDAEMIA
  9. LANTUS [Concomitant]
     Indication: TYPE 1 DIABETES MELLITUS
     Dosage: 25 IU, 1X/DAY
     Route: 058
     Dates: start: 20091228
  10. LOXONIN [Concomitant]
     Dosage: 1 DF, AS NEEDED
     Route: 062
     Dates: start: 20110512

REACTIONS (6)
  - ALANINE AMINOTRANSFERASE INCREASED [None]
  - BLOOD LACTATE DEHYDROGENASE INCREASED [None]
  - BLOOD ALKALINE PHOSPHATASE INCREASED [None]
  - BLOOD BILIRUBIN INCREASED [None]
  - ASPARTATE AMINOTRANSFERASE INCREASED [None]
  - GAMMA-GLUTAMYLTRANSFERASE INCREASED [None]
